FAERS Safety Report 25758461 (Version 2)
Quarter: 2025Q3

REPORT INFORMATION
  Report Type: Spontaneous
  Country: EU (occurrence: EU)
  Receive Date: 20250904
  Receipt Date: 20250918
  Transmission Date: 20251020
  Serious: Yes (Hospitalization)
  Sender: ALEXION PHARMACEUTICALS
  Company Number: EU-ROCHE-2302709

PATIENT
  Age: 52 Year
  Sex: Female
  Weight: 70 kg

DRUGS (68)
  1. FULVESTRANT [Suspect]
     Active Substance: FULVESTRANT
     Indication: HER2 positive breast cancer
     Dates: start: 20191104, end: 20201221
  2. FULVESTRANT [Suspect]
     Active Substance: FULVESTRANT
  3. PERJETA [Suspect]
     Active Substance: PERTUZUMAB
     Indication: HER2 positive breast cancer
     Dosage: 2520 MG, QW(840 MG, TIW, START DATE:30- JAN-2017,MOST RECENT DOSE PRIOR TO THE EVENT: 20/FEB/2017 )
     Dates: start: 20170130, end: 20170130
  4. PERJETA [Suspect]
     Active Substance: PERTUZUMAB
     Dosage: MOST RECENT DOSE PRIOR TO THE EVENT: 20/FEB/2017
     Dates: start: 20170130, end: 20170130
  5. PERJETA [Suspect]
     Active Substance: PERTUZUMAB
     Dosage: 2520 MG, QW(840 MG, TIW, START DATE:30- JAN-2017,MOST RECENT DOSE PRIOR TO THE EVENT: 20/FEB/2017 )
     Dates: end: 20170130
  6. HERCEPTIN [Suspect]
     Active Substance: TRASTUZUMAB
     Indication: HER2 positive breast cancer
     Dosage: 560 MG, Q3W (560 MG, TIW, START DATE: 30-JAN-2017,MOST RECENT DOSE PRIOR TO  THE EVENT: 20/FEB/2017)
     Dates: start: 20170220, end: 20180521
  7. HERCEPTIN [Suspect]
     Active Substance: TRASTUZUMAB
     Dosage: 560 MG, Q3W (560 MG, TIW, START DATE: 20-FEB-2017,MOST RECENT DOSE PRIOR TO THE EVENT: 20/FEB/2017)
     Dates: start: 20170130, end: 20170130
  8. HERCEPTIN [Suspect]
     Active Substance: TRASTUZUMAB
     Dosage: MOST RECENT DOSE PRIOR TO THE EVENT: 20/FEB/2017
     Dates: start: 20170130, end: 20170130
  9. HERCEPTIN [Suspect]
     Active Substance: TRASTUZUMAB
     Dosage: MOST RECENT DOSE PRIOR TO THE EVENT: 20/FEB/2017
     Dates: start: 20170220, end: 20180521
  10. KADCYLA [Suspect]
     Active Substance: ADO-TRASTUZUMAB EMTANSINE
     Indication: HER2 positive breast cancer
     Dosage: 3.6 UG/KG, TIW
     Dates: start: 20180613, end: 20181001
  11. KADCYLA [Suspect]
     Active Substance: ADO-TRASTUZUMAB EMTANSINE
     Dosage: 3.6 ?G/KG, Q3W(3..6 UG/KG, TIW, START  DATE:13-JUN-2018 )
     Dates: start: 20180613, end: 20181001
  12. KADCYLA [Suspect]
     Active Substance: ADO-TRASTUZUMAB EMTANSINE
     Dosage: 3.6 ?G/KG, Q3W(3..6 UG/KG, TIW, START  DATE:13-JUN-2018 )
     Dates: end: 20181001
  13. KADCYLA [Suspect]
     Active Substance: ADO-TRASTUZUMAB EMTANSINE
     Dosage: 3.6 MICROGRAM/KILOGRAM
     Dates: start: 20180613, end: 20181001
  14. XELODA [Suspect]
     Active Substance: CAPECITABINE
     Indication: HER2 positive breast cancer
  15. XELODA [Suspect]
     Active Substance: CAPECITABINE
     Indication: HER2 positive breast cancer
  16. XELODA [Suspect]
     Active Substance: CAPECITABINE
  17. HALAVEN [Suspect]
     Active Substance: ERIBULIN MESYLATE
     Indication: HER2 positive breast cancer
     Dates: start: 20190903, end: 20191023
  18. HALAVEN [Suspect]
     Active Substance: ERIBULIN MESYLATE
     Dates: end: 20191023
  19. HALAVEN [Suspect]
     Active Substance: ERIBULIN MESYLATE
     Dates: start: 20101023, end: 20191023
  20. HALAVEN [Suspect]
     Active Substance: ERIBULIN MESYLATE
  21. TYKERB [Suspect]
     Active Substance: LAPATINIB DITOSYLATE
     Indication: HER2 positive breast cancer
     Dosage: REPORTED WITH BRAND NAME (TYKERB) AND GENERIC NAME LAPATINIB DITOSYLATE MONOHYDRATE
     Dates: start: 20181016, end: 20190410
  22. TYKERB [Suspect]
     Active Substance: LAPATINIB DITOSYLATE
     Dosage: 1250 MG, QD( START DATE:16-OCT-2018, REPORTED WITH BRAND NAME (TYKERB) AND GENERIC NAME LAPATINIB DITOSYLATE MONOHYDRATE
     Dates: end: 20190410
  23. TAXOTERE [Suspect]
     Active Substance: DOCETAXEL
     Indication: HER2 positive breast cancer
     Dates: start: 20170130, end: 20170719
  24. VINORELBINE [Suspect]
     Active Substance: VINORELBINE TARTRATE
     Indication: HER2 positive breast cancer
     Dates: start: 20190503, end: 20190730
  25. VINORELBINE [Suspect]
     Active Substance: VINORELBINE TARTRATE
     Dates: end: 20190730
  26. PANTOPRAZOLE [Concomitant]
     Active Substance: PANTOPRAZOLE
     Indication: Product used for unknown indication
     Route: 065
  27. PANTOPRAZOLE [Concomitant]
     Active Substance: PANTOPRAZOLE
     Indication: Product used for unknown indication
     Route: 065
  28. PANTOPRAZOLE [Concomitant]
     Active Substance: PANTOPRAZOLE
     Route: 065
  29. ZOLEDRONIC ACID [Concomitant]
     Active Substance: ZOLEDRONIC ACID
     Indication: Product used for unknown indication
     Route: 065
     Dates: start: 20191106, end: 20200622
  30. LEVOTHYROXINE SODIUM [Concomitant]
     Active Substance: LEVOTHYROXINE SODIUM
     Indication: Product used for unknown indication
     Route: 065
  31. LEVOTHYROXINE SODIUM [Concomitant]
     Active Substance: LEVOTHYROXINE SODIUM
     Indication: Product used for unknown indication
  32. CITALOPRAM [Concomitant]
     Active Substance: CITALOPRAM
     Indication: Product used for unknown indication
     Route: 065
  33. CITALOPRAM [Concomitant]
     Active Substance: CITALOPRAM
     Indication: Product used for unknown indication
     Route: 065
  34. CITALOPRAM [Concomitant]
     Active Substance: CITALOPRAM
     Route: 065
  35. CITALOPRAM [Concomitant]
     Active Substance: CITALOPRAM
     Route: 065
  36. CITALOPRAM [Concomitant]
     Active Substance: CITALOPRAM
     Route: 065
  37. CITALOPRAM [Concomitant]
     Active Substance: CITALOPRAM
     Route: 065
  38. CITALOPRAM [Concomitant]
     Active Substance: CITALOPRAM
     Route: 065
  39. CITALOPRAM [Concomitant]
     Active Substance: CITALOPRAM
     Route: 065
  40. LOSARTAN [Concomitant]
     Active Substance: LOSARTAN
     Indication: Product used for unknown indication
     Route: 065
  41. LOSARTAN [Concomitant]
     Active Substance: LOSARTAN
     Route: 065
  42. LOSARTAN [Concomitant]
     Active Substance: LOSARTAN
     Route: 065
  43. LOSARTAN [Concomitant]
     Active Substance: LOSARTAN
     Route: 065
  44. LOSARTAN [Concomitant]
     Active Substance: LOSARTAN
     Route: 065
  45. LOSARTAN [Concomitant]
     Active Substance: LOSARTAN
     Route: 065
  46. LOSARTAN [Concomitant]
     Active Substance: LOSARTAN
     Route: 065
  47. LOSARTAN [Concomitant]
     Active Substance: LOSARTAN
     Route: 065
  48. VALSARTAN [Concomitant]
     Active Substance: VALSARTAN
     Indication: Product used for unknown indication
     Route: 065
  49. VALSARTAN [Concomitant]
     Active Substance: VALSARTAN
     Route: 065
  50. VALSARTAN [Concomitant]
     Active Substance: VALSARTAN
     Route: 065
  51. VALSARTAN [Concomitant]
     Active Substance: VALSARTAN
     Route: 065
  52. VALSARTAN [Concomitant]
     Active Substance: VALSARTAN
     Route: 065
  53. VALSARTAN [Concomitant]
     Active Substance: VALSARTAN
     Route: 065
  54. VALSARTAN [Concomitant]
     Active Substance: VALSARTAN
     Route: 065
  55. VALSARTAN [Concomitant]
     Active Substance: VALSARTAN
     Route: 065
  56. PALBOCICLIB [Suspect]
     Active Substance: PALBOCICLIB
     Indication: HER2 positive breast cancer
  57. PALBOCICLIB [Suspect]
     Active Substance: PALBOCICLIB
  58. PALBOCICLIB [Suspect]
     Active Substance: PALBOCICLIB
  59. PALBOCICLIB [Suspect]
     Active Substance: PALBOCICLIB
  60. PALBOCICLIB [Suspect]
     Active Substance: PALBOCICLIB
  61. CAPECITABINE [Suspect]
     Active Substance: CAPECITABINE
     Indication: HER2 positive breast cancer
  62. LAPATINIB [Suspect]
     Active Substance: LAPATINIB
     Indication: Breast cancer
     Dosage: 1250 MG, QD, START DATE:16-OCT-2018, (REPORTED WITH BRAND NAME (TYKERB) AND GENERIC NAME LAPATINIB DITOSYLATE MONOHYDRATE)
     Dates: end: 20190410
  63. LAPATINIB [Suspect]
     Active Substance: LAPATINIB
     Indication: HER2 positive breast cancer
  64. DOCETAXEL [Suspect]
     Active Substance: DOCETAXEL
     Indication: Breast cancer
     Dates: start: 20170130, end: 20170719
  65. DOCETAXEL [Suspect]
     Active Substance: DOCETAXEL
     Indication: HER2 positive breast cancer
  66. DOCETAXEL [Suspect]
     Active Substance: DOCETAXEL
  67. ERIBULIN MESYLATE [Suspect]
     Active Substance: ERIBULIN MESYLATE
     Indication: HER2 positive breast cancer
  68. PERTUZUMAB [Suspect]
     Active Substance: PERTUZUMAB
     Indication: HER2 positive breast cancer

REACTIONS (14)
  - Blood creatinine increased [Recovered/Resolved]
  - Blood bilirubin increased [Recovered/Resolved]
  - Fatigue [Recovered/Resolved]
  - Rash [Recovered/Resolved]
  - Somnolence [Unknown]
  - Renal failure [Unknown]
  - Dizziness [Unknown]
  - Hepatic failure [Unknown]
  - Malaise [Unknown]
  - Jaundice [Unknown]
  - Vomiting [Unknown]
  - Rash [Recovered/Resolved]
  - Rash [Recovered/Resolved]
  - Rash [Recovered/Resolved]

NARRATIVE: CASE EVENT DATE: 20190109
